FAERS Safety Report 6859093-4 (Version None)
Quarter: 2010Q3

REPORT INFORMATION
  Report Type: 
  Country: None (occurrence: None)
  Receive Date: 20100719
  Receipt Date: 20080421
  Transmission Date: 20110219
  Serious: No
  Sender: FDA-Public Use
  Company Number: US-PFIZER INC-2008016562

PATIENT
  Sex: Male
  Weight: 96.8 kg

DRUGS (6)
  1. CHANTIX [Suspect]
     Indication: TOBACCO USER
     Route: 048
     Dates: start: 20071218
  2. CHANTIX [Suspect]
     Indication: SMOKING CESSATION THERAPY
  3. BENICAR [Concomitant]
  4. PRILOSEC [Concomitant]
  5. METAMUCIL ^SEARLE^ [Concomitant]
  6. ALBUTEROL [Concomitant]

REACTIONS (2)
  - IRRITABILITY [None]
  - MOOD SWINGS [None]
